FAERS Safety Report 19427710 (Version 1)
Quarter: 2021Q2

REPORT INFORMATION
  Report Type: Spontaneous
  Country: US (occurrence: US)
  Receive Date: 20210616
  Receipt Date: 20210616
  Transmission Date: 20210717
  Serious: Yes (Other)
  Sender: FDA-Public Use
  Company Number: None

PATIENT
  Age: 68 Year
  Sex: Male
  Weight: 101.25 kg

DRUGS (6)
  1. FISH OIL [Concomitant]
     Active Substance: FISH OIL
  2. DICLOFENAC 15 GEL 100MG [DICLOFENAC SODIUM] [Suspect]
     Active Substance: DICLOFENAC SODIUM
     Indication: ARTHRALGIA
     Dosage: ?          QUANTITY:100 2 GRAMS DOSING CAR;?
     Route: 061
     Dates: start: 20210616, end: 20210616
  3. LOW DOSE ASPIRIN [Concomitant]
     Active Substance: ASPIRIN
  4. TURMERIC [Concomitant]
     Active Substance: HERBALS\TURMERIC
  5. VITAMIN D [Concomitant]
     Active Substance: VITAMIN D NOS
  6. LOSARTIN [Concomitant]
     Active Substance: LOSARTAN

REACTIONS (2)
  - Vision blurred [None]
  - Eye irritation [None]

NARRATIVE: CASE EVENT DATE: 20210616
